FAERS Safety Report 5928305-3 (Version None)
Quarter: 2008Q4

REPORT INFORMATION
  Report Type: 
  Country: None (occurrence: None)
  Receive Date: 20081022
  Receipt Date: 20081022
  Transmission Date: 20090506
  Serious: Yes (Hospitalization, Other)
  Sender: FDA-Public Use
  Company Number: None

PATIENT
  Age: 64 Year
  Sex: Female
  Weight: 117.9352 kg

DRUGS (6)
  1. DOCETAXEL [Suspect]
     Indication: BREAST CANCER
     Dosage: 160MG ONCE IV
     Route: 042
     Dates: start: 20080205, end: 20080205
  2. CYCLOPHOSPHAMIDE [Suspect]
     Indication: BREAST CANCER
     Dosage: 1284MG ONCE IV
     Route: 042
     Dates: start: 20080205, end: 20080205
  3. NORCO [Concomitant]
  4. DOCUSATE SODIUM [Concomitant]
  5. LUNESTA [Concomitant]
  6. LOTREL [Concomitant]

REACTIONS (9)
  - DIVERTICULUM INTESTINAL [None]
  - DUODENAL ULCER [None]
  - HAEMATOCHEZIA [None]
  - HAEMORRHOIDS [None]
  - HIATUS HERNIA [None]
  - LOWER GASTROINTESTINAL HAEMORRHAGE [None]
  - NAUSEA [None]
  - PEPTIC ULCER [None]
  - UPPER GASTROINTESTINAL HAEMORRHAGE [None]
